FAERS Safety Report 5705851-9 (Version None)
Quarter: 2008Q2

REPORT INFORMATION
  Report Type: 
  Country: None (occurrence: None)
  Receive Date: 20080411
  Receipt Date: 20080331
  Transmission Date: 20081010
  Serious: Yes (Death)
  Sender: FDA-Public Use
  Company Number: 1022556-2008-00501

PATIENT
  Age: 1 Year
  Sex: Male
  Weight: 11.3399 kg

DRUGS (1)
  1. UNISOM [Suspect]
     Indication: SLEEP DISORDER
     Dosage: 1X, ORAL
     Route: 048
     Dates: start: 20060327

REACTIONS (3)
  - ACCIDENTAL DRUG INTAKE BY CHILD [None]
  - CHILD NEGLECT [None]
  - FOREIGN BODY TRAUMA [None]
